FAERS Safety Report 9070629 (Version 1)
Quarter: 2013Q1

REPORT INFORMATION
  Report Type: Spontaneous
  Country: US (occurrence: US)
  Receive Date: 20130206
  Receipt Date: 20130206
  Transmission Date: 20140127
  Serious: Yes (Death, Other)
  Sender: FDA-Public Use
  Company Number: CHPA2013US002326

PATIENT
  Age: 28 Year
  Sex: Female

DRUGS (6)
  1. DIPHENHYDRAMINE [Suspect]
     Dosage: UNK, UNK
  2. MEPERIDINE [Suspect]
     Dosage: UNK, UNK
  3. NORTRIPTYLINE [Suspect]
     Dosage: UNK, UNK
  4. PROMETHAZINE [Suspect]
     Dosage: UNK, UNK
  5. METOCLOPRAMIDE [Suspect]
     Dosage: UNK, UNK
  6. DIAZEPAM [Suspect]
     Dosage: UNK, UNK

REACTIONS (2)
  - Intentional drug misuse [Fatal]
  - Cardio-respiratory arrest [Unknown]
